FAERS Safety Report 24769543 (Version 1)
Quarter: 2024Q4

REPORT INFORMATION
  Report Type: Spontaneous
  Country: US (occurrence: None)
  Receive Date: 20241223
  Receipt Date: 20241223
  Transmission Date: 20250115
  Serious: No
  Sender: Public
  Company Number: None

PATIENT
  Age: 33 Year
  Sex: Female
  Weight: 56.7 kg

DRUGS (1)
  1. ADBRY [Suspect]
     Active Substance: TRALOKINUMAB-LDRM
     Indication: Psoriasis
     Dosage: (2) 150MG INJECTIONS TOTALING  300MG VERY OTHER WEEK  SUBCUTANEOUS?
     Route: 058
     Dates: start: 20241001

REACTIONS (1)
  - Inappropriate schedule of product administration [None]
